FAERS Safety Report 9991411 (Version 1)
Quarter: 2014Q1

REPORT INFORMATION
  Report Type: Report from Study
  Country: US (occurrence: US)
  Receive Date: 20140310
  Receipt Date: 20140310
  Transmission Date: 20141002
  Serious: No
  Sender: FDA-Public Use
  Company Number: US-ABBVIE-13P-163-1129931-00

PATIENT
  Age: 19 Year
  Sex: Female

DRUGS (3)
  1. HUMIRA [Suspect]
     Indication: CROHN^S DISEASE
     Dates: start: 20130404
  2. JUNEL [Concomitant]
     Indication: CONTRACEPTION
     Dosage: DAILY
  3. LEXAPRO [Concomitant]
     Dosage: 20MG DAILY

REACTIONS (1)
  - Injection site erythema [Recovered/Resolved]
